FAERS Safety Report 7510930-X (Version None)
Quarter: 2011Q2

REPORT INFORMATION
  Report Type: 
  Country: None (occurrence: None)
  Receive Date: 20110531
  Receipt Date: 20071220
  Transmission Date: 20111010
  Serious: No
  Sender: FDA-Public Use
  Company Number: 2007BI027122

PATIENT
  Age: 45 Year
  Sex: Female

DRUGS (2)
  1. TYSABRI [Suspect]
     Indication: MULTIPLE SCLEROSIS
     Route: 042
     Dates: start: 20071205, end: 20091219
  2. TYSABRI [Suspect]
     Route: 042
     Dates: start: 20100430

REACTIONS (10)
  - MEMORY IMPAIRMENT [None]
  - MOBILITY DECREASED [None]
  - MUSCLE SPASMS [None]
  - ASTHENIA [None]
  - SLUGGISHNESS [None]
  - HYPOTONIA [None]
  - MOOD SWINGS [None]
  - HYPOAESTHESIA [None]
  - VOMITING [None]
  - ALOPECIA [None]
